FAERS Safety Report 5688889-X (Version None)
Quarter: 2008Q1

REPORT INFORMATION
  Report Type: 
  Country: None (occurrence: None)
  Receive Date: 20080331
  Receipt Date: 20080324
  Transmission Date: 20080703
  Serious: Yes (Other)
  Sender: FDA-Public Use
  Company Number: US-GENENTECH-258199

PATIENT
  Age: 69 Year
  Sex: Male
  Weight: 66.4 kg

DRUGS (4)
  1. BEVACIZUMAB [Suspect]
     Indication: COLORECTAL CANCER METASTATIC
     Dosage: 5 MG/KG, DAYS 1+15
     Route: 042
     Dates: start: 20071113
  2. OXALIPLATIN [Suspect]
     Indication: COLORECTAL CANCER METASTATIC
     Dosage: 85 MG/M2, DAYS 1+15
     Route: 042
     Dates: start: 20071113
  3. IRINOTECAN HCL [Concomitant]
     Indication: COLORECTAL CANCER METASTATIC
     Dosage: 150 MG/M2, DAYS 1+15
     Route: 042
     Dates: start: 20071113
  4. NORVASC [Concomitant]
     Indication: HYPERTENSION
     Dosage: 5 MG, QD

REACTIONS (1)
  - HYPOKALAEMIA [None]
